FAERS Safety Report 20573017 (Version 4)
Quarter: 2023Q2

REPORT INFORMATION
  Report Type: Spontaneous
  Country: JP (occurrence: JP)
  Receive Date: 20220309
  Receipt Date: 20230519
  Transmission Date: 20230721
  Serious: Yes (Death, Other)
  Sender: FDA-Public Use
  Company Number: JP-Eisai-202112494_LEN-HCC_P_1

PATIENT
  Sex: Male
  Weight: 62 kg

DRUGS (3)
  1. LENVATINIB [Suspect]
     Active Substance: LENVATINIB
     Indication: Hepatocellular carcinoma
     Route: 048
     Dates: start: 20181207
  2. LENVATINIB [Suspect]
     Active Substance: LENVATINIB
     Route: 048
     Dates: end: 2019
  3. KANAMYCIN [Concomitant]
     Active Substance: KANAMYCIN A SULFATE
     Indication: Hepatic encephalopathy
     Dosage: DOSE AND FREQUENCY UNKNOWN
     Route: 065
     Dates: start: 20190828

REACTIONS (7)
  - Malignant neoplasm progression [Fatal]
  - Hepatic encephalopathy [Recovered/Resolved]
  - Hypertension [Unknown]
  - Diarrhoea [Unknown]
  - Dysphonia [Unknown]
  - Taste disorder [Unknown]
  - Granulocyte count decreased [Unknown]

NARRATIVE: CASE EVENT DATE: 20190828
